FAERS Safety Report 6269074-X (Version None)
Quarter: 2009Q3

REPORT INFORMATION
  Report Type: 
  Country: None (occurrence: None)
  Receive Date: 20090715
  Receipt Date: 20090707
  Transmission Date: 20100115
  Serious: Yes (Other)
  Sender: FDA-Public Use
  Company Number: US-PFIZER INC-2009237627

PATIENT

DRUGS (1)
  1. TOVIAZ [Suspect]
     Dosage: UNK

REACTIONS (2)
  - LIP SWELLING [None]
  - SWELLING FACE [None]
